FAERS Safety Report 5382800-7 (Version None)
Quarter: 2007Q2

REPORT INFORMATION
  Report Type: 
  Country: None (occurrence: None)
  Receive Date: 20070629
  Receipt Date: 20070417
  Transmission Date: 20071010
  Serious: Yes (Other)
  Sender: FDA-Public Use
  Company Number: US200704003619

PATIENT
  Sex: Female

DRUGS (3)
  1. HUMALOG [Suspect]
  2. HUMULIN N [Suspect]
  3. HUMULIN N [Concomitant]

REACTIONS (8)
  - ARTHRITIS [None]
  - BLOOD GLUCOSE INCREASED [None]
  - CARPAL TUNNEL SYNDROME [None]
  - DRUG INEFFECTIVE [None]
  - EYE HAEMORRHAGE [None]
  - HYPERSENSITIVITY [None]
  - MYALGIA [None]
  - WEIGHT INCREASED [None]
